FAERS Safety Report 10898878 (Version 1)
Quarter: 2015Q1

REPORT INFORMATION
  Report Type: Spontaneous
  Country: FR (occurrence: FR)
  Receive Date: 20150309
  Receipt Date: 20150309
  Transmission Date: 20150721
  Serious: Yes (Other)
  Sender: FDA-Public Use
  Company Number: FR-TEVA-545590ISR

PATIENT
  Sex: Female

DRUGS (1)
  1. PREDNISONE TEVA 5 MG [Suspect]
     Active Substance: PREDNISONE
     Indication: BACK PAIN
     Dosage: 3 DOSAGE FORMS DAILY; INITIALLY PRESCRIBED FOR 10 DAYS.

REACTIONS (2)
  - Suffocation feeling [Recovered/Resolved]
  - Throat irritation [Recovered/Resolved]
